APPROVED DRUG PRODUCT: TIZANIDINE HYDROCHLORIDE
Active Ingredient: TIZANIDINE HYDROCHLORIDE
Strength: EQ 4MG BASE
Dosage Form/Route: TABLET;ORAL
Application: A076286 | Product #002 | TE Code: AB
Applicant: DR REDDYS LABORATORIES INC
Approved: Jul 3, 2002 | RLD: No | RS: No | Type: RX